FAERS Safety Report 18468947 (Version 2)
Quarter: 2020Q4

REPORT INFORMATION
  Report Type: Spontaneous
  Country: US (occurrence: US)
  Receive Date: 20201105
  Receipt Date: 20201204
  Transmission Date: 20210114
  Serious: No
  Sender: FDA-Public Use
  Company Number: US-ASTRAZENECA-2020SF31636

PATIENT
  Age: 27115 Day
  Sex: Female
  Weight: 47.2 kg

DRUGS (3)
  1. LIPITOR [Concomitant]
     Active Substance: ATORVASTATIN CALCIUM
     Dosage: FOR MANY YEARS
  2. CRESTOR [Suspect]
     Active Substance: ROSUVASTATIN CALCIUM
     Indication: BLOOD CHOLESTEROL INCREASED
     Dosage: PRESCRIBED THE PATIENT TO TAKE CRESTOR 20 MG
     Route: 048
  3. CRESTOR [Suspect]
     Active Substance: ROSUVASTATIN CALCIUM
     Indication: BLOOD CHOLESTEROL INCREASED
     Dosage: 40.0MG UNKNOWN
     Route: 048
     Dates: start: 20200722, end: 20200916

REACTIONS (12)
  - Therapy change [Unknown]
  - Neuralgia [Recovering/Resolving]
  - Musculoskeletal pain [Unknown]
  - Chest pain [Unknown]
  - Malaise [Unknown]
  - Hypokinesia [Unknown]
  - Arthralgia [Unknown]
  - Depressed mood [Unknown]
  - Intentional product misuse [Unknown]
  - Gait inability [Unknown]
  - Pain in extremity [Unknown]
  - Tension [Unknown]

NARRATIVE: CASE EVENT DATE: 20200819
